FAERS Safety Report 9725799 (Version 2)
Quarter: 2014Q1

REPORT INFORMATION
  Report Type: Spontaneous
  Country: FR (occurrence: FR)
  Receive Date: 20131203
  Receipt Date: 20140214
  Transmission Date: 20141002
  Serious: Yes (Hospitalization, Other)
  Sender: FDA-Public Use
  Company Number: FR-ASTELLAS-2013EU010433

PATIENT
  Sex: Male

DRUGS (4)
  1. PROGRAF [Suspect]
     Indication: RENAL TRANSPLANT
     Dosage: 1.5 MG, OTHER
     Route: 048
  2. PROGRAF [Suspect]
     Dosage: UNK MG, UID/QD
     Route: 048
     Dates: start: 20131119
  3. PROGRAF [Suspect]
     Dosage: 0.5 MG, UNKNOWN/D
     Route: 042
     Dates: start: 20131120
  4. COLCHIMAX [Suspect]
     Indication: GOUT
     Dosage: UNK
     Route: 065

REACTIONS (5)
  - Gastric dysplasia [Unknown]
  - Gout [Unknown]
  - Renal impairment [Unknown]
  - Diarrhoea [Unknown]
  - Decreased appetite [Unknown]
